FAERS Safety Report 16609524 (Version 4)
Quarter: 2019Q4

REPORT INFORMATION
  Report Type: Spontaneous
  Country: US (occurrence: US)
  Receive Date: 20190722
  Receipt Date: 20191125
  Transmission Date: 20200122
  Serious: Yes (Life-Threatening, Hospitalization, Other)
  Sender: FDA-Public Use
  Company Number: US-PFIZER INC-2019312151

PATIENT
  Age: 78 Year
  Sex: Female
  Weight: 107 kg

DRUGS (22)
  1. KRILL OIL [Concomitant]
     Active Substance: DIETARY SUPPLEMENT\KRILL OIL
     Dosage: 500 MG, DAILY
     Route: 048
     Dates: start: 20190726
  2. SENNOSIDES. [Concomitant]
     Active Substance: SENNOSIDES
     Dosage: UNK UNK, AS NEEDED [(8.6-50 MG) TABLET ORAL B.I.D. (TWO TIMES A DAY).  PRN (AS NEEDED)]
     Route: 048
     Dates: start: 20190726
  3. OXYCODONE HYDROCHLORIDE. [Concomitant]
     Active Substance: OXYCODONE HYDROCHLORIDE
     Dosage: 10 MG, 2X/DAY (Q (EVERY) 12 HOURS))
     Route: 048
  4. OXYCODONE HYDROCHLORIDE. [Concomitant]
     Active Substance: OXYCODONE HYDROCHLORIDE
     Dosage: UNK
  5. LETROZOLE. [Concomitant]
     Active Substance: LETROZOLE
     Dosage: 2.5 MG, DAILY
     Route: 048
     Dates: start: 20190625
  6. MAGNESIUM [Concomitant]
     Active Substance: MAGNESIUM
     Dosage: 125 MG, DAILY
     Route: 048
     Dates: start: 20190726
  7. OXYCODONE HYDROCHLORIDE. [Concomitant]
     Active Substance: OXYCODONE HYDROCHLORIDE
     Dosage: 15 MG, AS NEEDED ((0.5-1 TABLET (OF 15 MG) Q (EVERY) 6 HOURS PRN (AS NEE)
     Route: 048
  8. PROMETHAZINE HCL [Concomitant]
     Active Substance: PROMETHAZINE HYDROCHLORIDE
     Dosage: 25 MG, AS NEEDED, AS NEEDED [1 (25 MG) INJECTION Q (EVERY) 6 HOURS  PRN (AS NEEDED)]
     Dates: end: 20190723
  9. IBRANCE [Suspect]
     Active Substance: PALBOCICLIB
     Dosage: 125 MG, CYCLIC (1-21 EVERY 28 DAYS)
     Route: 048
     Dates: start: 20190712
  10. PROMETHAZINE HCL [Concomitant]
     Active Substance: PROMETHAZINE HYDROCHLORIDE
     Dosage: 25 MG, AS NEEDED ( BID (TWICW A DAY PRN (AS NEEDED)))
     Route: 048
     Dates: start: 20190726
  11. IBRANCE [Suspect]
     Active Substance: PALBOCICLIB
     Dosage: 100 MG, UNK
  12. ENOXAPARIN SODIUM. [Concomitant]
     Active Substance: ENOXAPARIN SODIUM
     Dosage: UNK, 2X/DAY (Q (EVERY) 12 HOURS)
     Route: 058
     Dates: start: 20190726
  13. MIRALAX [Concomitant]
     Active Substance: POLYETHYLENE GLYCOL 3350
     Dosage: 17 G, AS NEEDED [17 G (OF 17 G) POWDER DAILY PRN (AS NEEDED)]
     Route: 048
  14. ONDANSETRON [Concomitant]
     Active Substance: ONDANSETRON
     Dosage: 8 MG, AS NEEDED [1 (8 MG) TABLET Q (EVERY) 8 HOURS  PRN (AS NEEDED)]
  15. DIAZEPAM. [Concomitant]
     Active Substance: DIAZEPAM
     Dosage: 5 MG, AS NEEDED (Q (EVERY) 8 HOURS)
     Route: 048
     Dates: end: 20190723
  16. LACTULOSE. [Concomitant]
     Active Substance: LACTULOSE
     Dosage: UNK UNK, AS NEEDED [45 (10 G/15ML) SOLUTION ORAL T.I.D.(THREE TIMES A DAY) PRN (AS NEEDED)]
     Route: 048
     Dates: end: 20190723
  17. IBRANCE [Suspect]
     Active Substance: PALBOCICLIB
     Indication: BREAST CANCER METASTATIC
     Dosage: 125 MG, DAILY
     Route: 048
     Dates: start: 20190425
  18. COQ [Concomitant]
     Dosage: 300 MG, DAILY
     Route: 048
     Dates: start: 20190726
  19. IBUPROFEN. [Concomitant]
     Active Substance: IBUPROFEN
     Dosage: 800 MG, AS NEEDED (TID (THREE TIMES A DAY PRN (AS NEEDED))
  20. ACETAMINOPHEN. [Concomitant]
     Active Substance: ACETAMINOPHEN
     Dosage: UNK UNK, AS NEEDED
     Route: 048
     Dates: end: 20190723
  21. MECLIZINE HCL [Concomitant]
     Active Substance: MECLIZINE HYDROCHLORIDE
     Dosage: UNK
     Route: 048
     Dates: end: 20190723
  22. IBRANCE [Suspect]
     Active Substance: PALBOCICLIB
     Dosage: 125 MG, UNK (TAKE AS DIRECTED)
     Route: 048
     Dates: start: 20190625

REACTIONS (10)
  - Pulmonary embolism [Not Recovered/Not Resolved]
  - Chest discomfort [Unknown]
  - Dyspnoea [Unknown]
  - Nausea [Unknown]
  - Anxiety [Unknown]
  - Feeling jittery [Unknown]
  - Tremor [Unknown]
  - Full blood count decreased [Unknown]
  - Dizziness [Unknown]
  - Constipation [Unknown]

NARRATIVE: CASE EVENT DATE: 20190524
